FAERS Safety Report 9143109 (Version 1)
Quarter: 2013Q1

REPORT INFORMATION
  Report Type: Report from Study
  Country: FR (occurrence: FR)
  Receive Date: 20130306
  Receipt Date: 20130306
  Transmission Date: 20140127
  Serious: Yes (Other)
  Sender: FDA-Public Use
  Company Number: FR-ASTELLAS-2013US002419

PATIENT
  Sex: 0

DRUGS (6)
  1. ERLOTINIB TABLET [Suspect]
     Indication: PANCREATIC CARCINOMA
     Dosage: 125 MG, DAY 1 TO DAY 28
     Route: 048
  2. ERLOTINIB TABLET [Suspect]
     Dosage: 75 MG, DAY 1 TO DAY 28
     Route: 048
  3. ERLOTINIB TABLET [Suspect]
     Dosage: 100 MG, DAY 1 TO DAY 28
     Route: 048
  4. ERLOTINIB TABLET [Suspect]
     Dosage: 125 MG, DAY 1 TO DAY 28
     Route: 048
  5. CAPECITABINE [Suspect]
     Indication: PANCREATIC CARCINOMA
     Dosage: 1660 MG/M2, (830 MG/M2 DAY 1 TO DAY 21)
     Route: 048
  6. GEMCITABINE [Suspect]
     Indication: PANCREATIC CARCINOMA
     Dosage: 1000 MG/M2, ON DAY 1, 8, 15 OF A 28 DAY CYCLE
     Route: 042

REACTIONS (3)
  - Thrombocytopenia [Unknown]
  - Rash [Unknown]
  - Mucosal inflammation [Unknown]
